FAERS Safety Report 8517933 (Version 3)
Quarter: 2014Q1

REPORT INFORMATION
  Report Type: Spontaneous
  Country: US (occurrence: US)
  Receive Date: 20120417
  Receipt Date: 20140109
  Transmission Date: 20141002
  Serious: Yes (Hospitalization, Other)
  Sender: FDA-Public Use
  Company Number: US-ASTRAZENECA-2011SE41528

PATIENT
  Age: 21123 Day
  Sex: Female

DRUGS (22)
  1. NEXIUM [Suspect]
     Indication: ABDOMINAL DISCOMFORT
     Dosage: TWICE A DAY
     Route: 048
     Dates: start: 2007
  2. NEXIUM [Suspect]
     Indication: GASTROOESOPHAGEAL REFLUX DISEASE
     Dosage: TWICE A DAY
     Route: 048
     Dates: start: 2007
  3. NEXIUM [Suspect]
     Indication: PEPTIC ULCER
     Dosage: TWICE A DAY
     Route: 048
     Dates: start: 2007
  4. NEXIUM [Suspect]
     Indication: ABDOMINAL DISCOMFORT
     Route: 048
     Dates: start: 2008, end: 2010
  5. NEXIUM [Suspect]
     Indication: GASTROOESOPHAGEAL REFLUX DISEASE
     Route: 048
     Dates: start: 2008, end: 2010
  6. NEXIUM [Suspect]
     Indication: PEPTIC ULCER
     Route: 048
     Dates: start: 2008, end: 2010
  7. NEXIUM [Suspect]
     Indication: ABDOMINAL DISCOMFORT
     Route: 048
     Dates: start: 20081229
  8. NEXIUM [Suspect]
     Indication: GASTROOESOPHAGEAL REFLUX DISEASE
     Route: 048
     Dates: start: 20081229
  9. NEXIUM [Suspect]
     Indication: PEPTIC ULCER
     Route: 048
     Dates: start: 20081229
  10. ALKA SELTZER [Concomitant]
  11. TUMS [Concomitant]
  12. ROLAIDS [Concomitant]
  13. VITAMIN D [Concomitant]
     Indication: BONE DISORDER
     Dosage: 50K UNIT
     Dates: start: 20100714
  14. LOVOTHYROXINE [Concomitant]
     Indication: THYROID DISORDER
  15. BISOPROLOL [Concomitant]
     Indication: HYPERTENSION
  16. ZINC [Concomitant]
     Indication: HYPERTENSION
  17. FEM RING [Concomitant]
  18. FEM RING [Concomitant]
  19. ALENDRONATE SODIUM [Concomitant]
     Indication: BONE DISORDER
     Dates: start: 20100714
  20. ALPRAZOLAM [Concomitant]
     Dates: start: 20100203
  21. VITAMIN D3 [Concomitant]
     Dosage: 50K
  22. CRESTOR [Concomitant]

REACTIONS (9)
  - Thyroid disorder [Unknown]
  - Thyroid neoplasm [Unknown]
  - Hypothyroidism [Unknown]
  - Osteoporosis [Unknown]
  - Calcium deficiency [Unknown]
  - Activities of daily living impaired [Unknown]
  - Osteoarthritis [Unknown]
  - Vitamin D deficiency [Unknown]
  - Osteopenia [Unknown]
